FAERS Safety Report 13431692 (Version 2)
Quarter: 2017Q3

REPORT INFORMATION
  Report Type: Spontaneous
  Country: US (occurrence: US)
  Receive Date: 20170412
  Receipt Date: 20170719
  Transmission Date: 20171127
  Serious: Yes (Hospitalization, Other)
  Sender: FDA-Public Use
  Company Number: US-JNJFOC-20170300929

PATIENT
  Age: 60 Year
  Sex: Female

DRUGS (2)
  1. XARELTO [Suspect]
     Active Substance: RIVAROXABAN
     Indication: PULMONARY EMBOLISM
     Dosage: 15 MG TWICE A DAY FOR 20 DAYS??AND THEN 20 MG ONCE DAILY.
     Route: 048
     Dates: start: 20140607, end: 20141203
  2. XARELTO [Suspect]
     Active Substance: RIVAROXABAN
     Indication: PULMONARY EMBOLISM
     Route: 048
     Dates: start: 20130109, end: 20130626

REACTIONS (8)
  - Renal haemorrhage [Unknown]
  - Nephrolithiasis [Unknown]
  - Hypokalaemia [Unknown]
  - Hypothyroidism [Unknown]
  - Acute kidney injury [Unknown]
  - Hydronephrosis [Unknown]
  - Haematuria [Unknown]
  - Subdural haematoma [Unknown]

NARRATIVE: CASE EVENT DATE: 20130114
